FAERS Safety Report 8603474-5 (Version None)
Quarter: 2012Q3

REPORT INFORMATION
  Report Type: 
  Country: None (occurrence: None)
  Receive Date: 20120817
  Receipt Date: 20120807
  Transmission Date: 20120928
  Serious: Yes (Other)
  Sender: FDA-Public Use
  Company Number: CHPA2012US017828

PATIENT
  Sex: Female

DRUGS (3)
  1. THYROID TAB [Concomitant]
     Indication: THYROID DISORDER
     Dosage: UNK, UNK
  2. CARDIAC THERAPY [Concomitant]
     Dosage: UNK, UNK
  3. EXCEDRIN EXTRA STRENGTH CAPLETS [Suspect]
     Indication: HEADACHE
     Dosage: 1DF OR 2DF, PRN
     Route: 048
     Dates: start: 19600101, end: 20120601

REACTIONS (4)
  - MYOCARDIAL INFARCTION [None]
  - UNDERDOSE [None]
  - FRUSTRATION [None]
  - DISEASE RECURRENCE [None]
